FAERS Safety Report 7605347-3 (Version None)
Quarter: 2011Q3

REPORT INFORMATION
  Report Type: 
  Country: None (occurrence: None)
  Receive Date: 20110713
  Receipt Date: 20110701
  Transmission Date: 20111222
  Serious: Yes (Other)
  Sender: FDA-Public Use
  Company Number: IT-ELI_LILLY_AND_COMPANY-IT201106002757

PATIENT
  Age: 52 Year
  Sex: Female

DRUGS (2)
  1. CYMBALTA [Suspect]
     Dosage: 60 MG, QD
     Dates: start: 20110404
  2. CYMBALTA [Suspect]
     Dosage: 30 MG, UNK

REACTIONS (4)
  - HYPERTENSION [None]
  - INTENTIONAL DRUG MISUSE [None]
  - OCULAR HYPERTENSION [None]
  - CONJUNCTIVAL HAEMORRHAGE [None]
